FAERS Safety Report 8553794-8 (Version None)
Quarter: 2012Q3

REPORT INFORMATION
  Report Type: 
  Country: None (occurrence: None)
  Receive Date: 20120731
  Receipt Date: 20120718
  Transmission Date: 20120928
  Serious: Yes (Hospitalization)
  Sender: FDA-Public Use
  Company Number: FR-009507513-1207FRA007968

PATIENT

DRUGS (30)
  1. ALIMTA [Suspect]
     Dosage: 900 MG, ONCE
     Route: 051
     Dates: start: 20120305, end: 20120305
  2. ALIMTA [Suspect]
     Dosage: 900 MG, ONCE
     Route: 051
     Dates: start: 20120327, end: 20120327
  3. LYRICA [Suspect]
     Dosage: 100 MG, BID
     Route: 048
  4. ONDANSETRON [Suspect]
     Dosage: 8 MG, ONCE
     Route: 051
     Dates: start: 20120515, end: 20120515
  5. DEXAMETHASONE [Suspect]
     Dosage: 4 MG, BID
     Route: 048
     Dates: start: 20120304, end: 20120306
  6. DEXAMETHASONE [Suspect]
     Dosage: 4 MG, BID
     Dates: start: 20120416, end: 20120416
  7. CISPLATIN [Suspect]
     Dosage: 140 MG, ONCE
     Route: 051
     Dates: start: 20120305, end: 20120305
  8. METHYLPREDNISOLONE [Suspect]
     Dosage: 120 MG, ONCE
     Route: 051
     Dates: start: 20120417, end: 20120417
  9. DEXAMETHASONE [Suspect]
     Dosage: 4 MG, BID
     Route: 048
     Dates: start: 20120514, end: 20120516
  10. EMEND [Suspect]
     Dosage: 125 MG, ONCE
     Route: 048
     Dates: start: 20120515, end: 20120515
  11. ZOMETA [Suspect]
     Dosage: UNK
     Route: 051
     Dates: start: 20120515, end: 20120515
  12. FOLIC ACID [Suspect]
     Dosage: 0.4 MG, QD
     Route: 048
     Dates: start: 20120227, end: 20120604
  13. EMEND [Suspect]
     Dosage: 125 MG, ONCE
     Route: 048
     Dates: start: 20120305, end: 20120305
  14. ALIMTA [Suspect]
     Dosage: 900 MG, ONCE
     Route: 051
     Dates: start: 20120417, end: 20120417
  15. ONDANSETRON [Suspect]
     Dosage: 8 MG, ONCE
     Route: 051
     Dates: start: 20120417, end: 20120417
  16. OXYCODONE HCL [Concomitant]
     Dosage: 5 MG, PRN
     Route: 048
  17. EMEND [Suspect]
     Dosage: 125 MG, ONCE
     Route: 048
     Dates: start: 20120327, end: 20120327
  18. EMEND [Suspect]
     Dosage: 125 MG, ONCE
     Route: 048
     Dates: start: 20120417, end: 20120417
  19. ONDANSETRON [Suspect]
     Dosage: 8 MG, ONCE
     Route: 051
     Dates: start: 20120327, end: 20120327
  20. METHYLPREDNISOLONE [Suspect]
     Dosage: 120 MG, ONCE
     Route: 051
     Dates: start: 20120305, end: 20120305
  21. METHYLPREDNISOLONE [Suspect]
     Dosage: 120 MG, ONCE
     Route: 051
     Dates: start: 20120515, end: 20120515
  22. ALIMTA [Suspect]
     Dosage: 900 MG, ONCE
     Route: 051
     Dates: start: 20120515, end: 20120515
  23. CISPLATIN [Suspect]
     Dosage: 140 MG, ONCE
     Route: 051
     Dates: start: 20120515, end: 20120515
  24. OXYCONTIN [Suspect]
     Dosage: 90 MG, QD
     Route: 048
  25. METHYLPREDNISOLONE [Suspect]
     Dosage: 120 MG, ONCE
     Route: 051
     Dates: start: 20120327, end: 20120327
  26. DEXAMETHASONE [Suspect]
     Dosage: 4 MG, BID
     Route: 048
     Dates: start: 20120326, end: 20120328
  27. CISPLATIN [Suspect]
     Dosage: 140 MG, ONCE
     Route: 051
     Dates: start: 20120327, end: 20120327
  28. CISPLATIN [Suspect]
     Dosage: 140 MG, ONCE
     Route: 051
     Dates: start: 20120417, end: 20120417
  29. ONDANSETRON [Suspect]
     Dosage: 8 MG, ONCE
     Route: 051
     Dates: start: 20120305, end: 20120305
  30. CYANOCOBALAMIN [Concomitant]
     Dosage: 1000 MICROGRAM, UNK

REACTIONS (2)
  - HAEMOLYTIC ANAEMIA [None]
  - DYSPNOEA [None]
